FAERS Safety Report 6376434-5 (Version None)
Quarter: 2009Q3

REPORT INFORMATION
  Report Type: 
  Country: None (occurrence: None)
  Receive Date: 20090925
  Receipt Date: 20090922
  Transmission Date: 20100115
  Serious: Yes (Hospitalization, Other)
  Sender: FDA-Public Use
  Company Number: US-JNJFOC-20090608917

PATIENT
  Sex: Female
  Weight: 71.22 kg

DRUGS (1)
  1. LEVAQUIN [Suspect]
     Indication: SURGERY
     Route: 048

REACTIONS (4)
  - ATRIAL FIBRILLATION [None]
  - HYPERTENSION [None]
  - MUSCULAR WEAKNESS [None]
  - TACHYCARDIA [None]
